FAERS Safety Report 7005451-7 (Version None)
Quarter: 2010Q3

REPORT INFORMATION
  Report Type: 
  Country: None (occurrence: None)
  Receive Date: 20100917
  Receipt Date: 20100907
  Transmission Date: 20110219
  Serious: Yes (Hospitalization, Other)
  Sender: FDA-Public Use
  Company Number: 1000014890

PATIENT
  Age: 76 Year
  Sex: Female
  Weight: 48 kg

DRUGS (6)
  1. ESCITALOPRAM [Suspect]
     Indication: DEPRESSION
     Dosage: 5 MG (5 MG, 1 IN 1 D), ORAL
     Route: 048
     Dates: start: 20100310, end: 20100317
  2. HYPNOTICS NOS [Suspect]
     Dosage: UNKNOWN AMOUNT
     Dates: start: 20100317, end: 20100317
  3. LOXEN [Concomitant]
  4. GLUCOPHAGE [Concomitant]
  5. TRIATEC [Concomitant]
  6. LYRICA [Concomitant]

REACTIONS (3)
  - INTENTIONAL OVERDOSE [None]
  - MOOD ALTERED [None]
  - SUICIDE ATTEMPT [None]
